FAERS Safety Report 4513873-9 (Version None)
Quarter: 2004Q4

REPORT INFORMATION
  Report Type: 
  Country: None (occurrence: None)
  Receive Date: 20041130
  Receipt Date: 20040917
  Transmission Date: 20050328
  Serious: No
  Sender: FDA-Public Use
  Company Number: US-GLAXOSMITHKLINE-A0526179A

PATIENT
  Sex: Female

DRUGS (6)
  1. WELLBUTRIN XL [Suspect]
     Indication: DEPRESSION
     Dosage: 150MG PER DAY
     Route: 048
  2. METOPROLOL [Concomitant]
  3. NORVASC [Concomitant]
  4. KLONOPIN [Concomitant]
  5. SEMARA [Concomitant]
  6. ZOLOFT [Concomitant]

REACTIONS (2)
  - INSOMNIA [None]
  - MUSCLE CRAMP [None]
